FAERS Safety Report 21677886 (Version 2)
Quarter: 2023Q1

REPORT INFORMATION
  Report Type: Spontaneous
  Country: KR (occurrence: KR)
  Receive Date: 20221203
  Receipt Date: 20230112
  Transmission Date: 20230417
  Serious: Yes (Hospitalization)
  Sender: FDA-Public Use
  Company Number: KR-UNITED THERAPEUTICS-UNT-2022-029404

PATIENT
  Age: 31 Year
  Sex: Female
  Weight: 66.45 kg

DRUGS (2)
  1. REMODULIN [Suspect]
     Active Substance: TREPROSTINIL
     Indication: Pulmonary arterial hypertension
     Dosage: UNK, CONTINUING
     Route: 058
     Dates: start: 20201007
  2. REMODULIN [Suspect]
     Active Substance: TREPROSTINIL
     Dosage: 0.064 ?G/KG, CONTINUING
     Route: 058

REACTIONS (7)
  - Infusion site oedema [Recovered/Resolved]
  - Infusion site pain [Recovered/Resolved]
  - Oedema genital [Recovered/Resolved]
  - Swelling [Recovered/Resolved]
  - COVID-19 [Recovered/Resolved]
  - Infusion site warmth [Recovered/Resolved]
  - Oedema peripheral [Recovered/Resolved]

NARRATIVE: CASE EVENT DATE: 20221126
